FAERS Safety Report 17877054 (Version 1)
Quarter: 2020Q2

REPORT INFORMATION
  Report Type: Report from Study
  Country: GT (occurrence: GT)
  Receive Date: 20200609
  Receipt Date: 20200609
  Transmission Date: 20200714
  Serious: Yes (Other)
  Sender: FDA-Public Use
  Company Number: NVSC2020GT159976

PATIENT
  Age: 40 Year
  Sex: Female

DRUGS (1)
  1. VYMADA [Suspect]
     Active Substance: SACUBITRIL\VALSARTAN
     Indication: PRODUCT USED FOR UNKNOWN INDICATION
     Dosage: 50 MG, UNKNOWN
     Route: 065

REACTIONS (10)
  - Abdominal discomfort [Unknown]
  - Weight decreased [Unknown]
  - Hypophagia [Unknown]
  - Ulcer [Unknown]
  - Inflammation [Unknown]
  - Vomiting [Unknown]
  - Cardiomegaly [Unknown]
  - Hepatitis [Unknown]
  - Dyspepsia [Unknown]
  - Fatigue [Unknown]
